FAERS Safety Report 5078957-8 (Version None)
Quarter: 2006Q3

REPORT INFORMATION
  Report Type: 
  Country: None (occurrence: None)
  Receive Date: 20060809
  Receipt Date: 20060809
  Transmission Date: 20061208
  Serious: Yes (Death, Hospitalization)
  Sender: FDA-Public Use
  Company Number: None

PATIENT
  Sex: Female
  Weight: 107.9 kg

DRUGS (2)
  1. CYTARABINE [Suspect]
     Dosage: 1266 MG
     Dates: end: 20060726
  2. DAUNORUBICIN HCL [Suspect]
     Dosage: 381 MG

REACTIONS (10)
  - ACUTE MYELOID LEUKAEMIA [None]
  - ACUTE RESPIRATORY DISTRESS SYNDROME [None]
  - BLOOD PRESSURE DECREASED [None]
  - CARDIAC ARREST [None]
  - FEBRILE NEUTROPENIA [None]
  - GENERALISED OEDEMA [None]
  - OXYGEN SATURATION DECREASED [None]
  - PARANEOPLASTIC SYNDROME [None]
  - RESPIRATORY FAILURE [None]
  - SUBARACHNOID HAEMORRHAGE [None]
